FAERS Safety Report 7885541-7 (Version None)
Quarter: 2011Q4

REPORT INFORMATION
  Report Type: 
  Country: None (occurrence: None)
  Receive Date: 20111102
  Receipt Date: 20110708
  Transmission Date: 20120403
  Serious: No
  Sender: FDA-Public Use
  Company Number: US-AMGEN-USASP2011025205

PATIENT
  Age: 89 Year
  Sex: Male
  Weight: 63.946 kg

DRUGS (1)
  1. ENBREL [Suspect]
     Indication: RHEUMATOID ARTHRITIS
     Dosage: 50 MG, QWK
     Dates: start: 20110329

REACTIONS (3)
  - GOUT [None]
  - PNEUMONIA [None]
  - RHEUMATOID ARTHRITIS [None]
